FAERS Safety Report 6260932-9 (Version None)
Quarter: 2009Q3

REPORT INFORMATION
  Report Type: 
  Country: None (occurrence: None)
  Receive Date: 20090707
  Receipt Date: 20090707
  Transmission Date: 20100115
  Serious: Yes (Life-Threatening, Hospitalization)
  Sender: FDA-Public Use
  Company Number: None

PATIENT
  Sex: Male
  Weight: 60.3284 kg

DRUGS (1)
  1. ADVAIR DISKUS 500/50 [Suspect]
     Indication: CHRONIC OBSTRUCTIVE PULMONARY DISEASE
     Dosage: 500/50 TWICE A DAY OROPHARINGEAL
     Route: 049
     Dates: start: 20081201, end: 20090406

REACTIONS (2)
  - PNEUMONIA [None]
  - THROAT TIGHTNESS [None]
